FAERS Safety Report 13071475 (Version 6)
Quarter: 2019Q1

REPORT INFORMATION
  Report Type: Spontaneous
  Country: US (occurrence: US)
  Receive Date: 20161229
  Receipt Date: 20190315
  Transmission Date: 20190417
  Serious: No
  Sender: FDA-Public Use
  Company Number: US-PFIZER INC-2016594702

PATIENT
  Age: 79 Year
  Sex: Female

DRUGS (2)
  1. CELEBREX [Suspect]
     Active Substance: CELECOXIB
     Dosage: 200 MG, 2X/DAY
     Route: 048
  2. CELEBREX [Suspect]
     Active Substance: CELECOXIB
     Indication: INJURY
     Dosage: 200 MG, DAILY
     Route: 048
     Dates: start: 2003

REACTIONS (5)
  - Product dispensing error [Unknown]
  - Product label issue [Unknown]
  - Product dose omission [Unknown]
  - Decreased appetite [Recovered/Resolved]
  - Pancreatic cyst [Recovered/Resolved]

NARRATIVE: CASE EVENT DATE: 201611
